FAERS Safety Report 9201481 (Version 2)
Quarter: 2013Q2

REPORT INFORMATION
  Report Type: Spontaneous
  Country: US (occurrence: US)
  Receive Date: 20130401
  Receipt Date: 20130515
  Transmission Date: 20140414
  Serious: Yes (Hospitalization)
  Sender: FDA-Public Use
  Company Number: US-INCYTE CORPORATION-2013IN000622

PATIENT
  Age: 75 Year
  Sex: Female
  Weight: 73.92 kg

DRUGS (8)
  1. JAKAFI [Suspect]
     Indication: MYELOFIBROSIS
     Dosage: 10 MG, BID
     Route: 048
     Dates: start: 20120207
  2. JAKAFI [Suspect]
     Indication: SPLENOMEGALY
  3. METOPROLOL [Concomitant]
  4. MULTAQ [Concomitant]
  5. COUMADIN [Concomitant]
  6. ASPIRIN [Concomitant]
     Dosage: 81 MG, UNK
  7. CALTRATE [Concomitant]
  8. TYLENOL [Concomitant]

REACTIONS (1)
  - Pneumonia [Recovered/Resolved]
